FAERS Safety Report 9020606 (Version 1)
Quarter: 2013Q1

REPORT INFORMATION
  Report Type: Spontaneous
  Country: US (occurrence: US)
  Receive Date: 20130119
  Receipt Date: 20130119
  Transmission Date: 20140127
  Serious: No
  Sender: FDA-Public Use
  Company Number: US-ALLERGAN-1206980US

PATIENT
  Age: 69 Year
  Sex: Female

DRUGS (2)
  1. BOTOX COSMETIC [Suspect]
     Indication: SKIN WRINKLING
     Dosage: 25 UNITS, SINGLE
     Route: 030
     Dates: start: 20120416, end: 20120416
  2. BOTOX COSMETIC [Suspect]
     Indication: SKIN WRINKLING
     Dosage: 20 UNITS, SINGLE
     Dates: start: 20120416, end: 20120416

REACTIONS (5)
  - Skin wrinkling [Unknown]
  - Skin wrinkling [Unknown]
  - Injection site pain [Unknown]
  - Facial pain [Not Recovered/Not Resolved]
  - Drug ineffective [Unknown]
